FAERS Safety Report 9869393 (Version 1)
Quarter: 2014Q1

REPORT INFORMATION
  Report Type: Spontaneous
  Country: US (occurrence: US)
  Receive Date: 20140205
  Receipt Date: 20140205
  Transmission Date: 20141002
  Serious: Yes (Other)
  Sender: FDA-Public Use
  Company Number: US-BAYER-2014-017052

PATIENT
  Age: 17 Year
  Sex: Female
  Weight: 56.69 kg

DRUGS (16)
  1. YAZ [Suspect]
  2. YASMIN [Suspect]
     Dosage: 1 DF, QD
     Dates: start: 20080602
  3. OCELLA [Suspect]
  4. PAROXETINE HYDROCHLORIDE [Concomitant]
     Dosage: 20 MG, UNK
     Dates: start: 20100912
  5. FLUTICASONE PROPIONATE [Concomitant]
     Dosage: 50 ?G, UNK
     Dates: start: 20101016
  6. SUDAFED [Concomitant]
     Indication: NASAL CONGESTION
     Dosage: UNK
     Dates: start: 20101116
  7. ADVAIR DISKUS [Concomitant]
     Dosage: 1 PUFF(S), BID
     Route: 055
     Dates: start: 20101002
  8. ADVAIR DISKUS [Concomitant]
     Dosage: 1 PUFF(S), BID
     Route: 055
     Dates: start: 20101016
  9. ADVAIR DISKUS [Concomitant]
     Dosage: 1 PUFF(S), BID
     Route: 055
     Dates: start: 20101203
  10. PAXIL [Concomitant]
     Indication: GENERALISED ANXIETY DISORDER
     Dosage: 10 MG, QD
     Route: 048
     Dates: start: 20101116
  11. PAXIL [Concomitant]
     Indication: GENERALISED ANXIETY DISORDER
     Dosage: 10 MG, QD
     Dates: start: 20101203
  12. ALBUTEROL [Concomitant]
     Indication: COUGH
     Dosage: 90MCG/1 ACTUATION, 2 PUFFS Q 4-6H AS NEEDED
     Route: 055
     Dates: start: 20101116
  13. ALBUTEROL [Concomitant]
     Indication: WHEEZING
     Dosage: 90MCG/1 ACTUATION, 2 PUFFS Q 4-6H AS NEEDED
     Route: 055
     Dates: start: 20101203
  14. ZITHROMAX [Concomitant]
     Indication: ACUTE SINUSITIS
     Dosage: 250 MG, 2 TABLETS BY MOUTH ON A DAY 1 THEN 1 TABLET EVERY DAY FOR THE NEXT 4 DAYS
     Route: 048
     Dates: start: 20101116
  15. ZITHROMAX [Concomitant]
     Indication: ACUTE SINUSITIS
     Dosage: 250 MG, 2 TABLETS BY MOUTH ON A DAY 1 THEN 1 TABLET EVERY DAY FOR THE NEXT 4 DAYS
     Route: 048
     Dates: start: 20101203
  16. VERAPAMIL [Concomitant]
     Dosage: UNK
     Dates: start: 20101203

REACTIONS (1)
  - Deep vein thrombosis [Recovered/Resolved]
